FAERS Safety Report 13896876 (Version 2)
Quarter: 2017Q3

REPORT INFORMATION
  Report Type: Report from Study
  Country: CA (occurrence: CA)
  Receive Date: 20170823
  Receipt Date: 20170905
  Transmission Date: 20171127
  Serious: Yes (Hospitalization, Other)
  Sender: FDA-Public Use
  Company Number: CA-REGENERON PHARMACEUTICALS, INC.-2017-20335

PATIENT

DRUGS (1)
  1. EYLEA [Suspect]
     Active Substance: AFLIBERCEPT
     Indication: DIABETIC RETINOPATHY
     Dosage: 0.05 CC (OD). TOTAL DOSES RECEIVED WERE NOT PROVIDED.
     Route: 031
     Dates: start: 20170607, end: 20170607

REACTIONS (8)
  - Abnormal loss of weight [Unknown]
  - Maternal exposure during pregnancy [Unknown]
  - Cardiac failure [Unknown]
  - Abnormal weight gain [Unknown]
  - Malaise [Unknown]
  - Respiratory disorder [Unknown]
  - Renal disorder [Unknown]
  - Stillbirth [Unknown]

NARRATIVE: CASE EVENT DATE: 20170608
